FAERS Safety Report 12183211 (Version 2)
Quarter: 2016Q1

REPORT INFORMATION
  Report Type: Spontaneous
  Country: EG (occurrence: EG)
  Receive Date: 20160316
  Receipt Date: 20160323
  Transmission Date: 20160526
  Serious: Yes (Hospitalization)
  Sender: FDA-Public Use
  Company Number: PHHY2016EG033848

PATIENT
  Sex: Female

DRUGS (1)
  1. CATAFAST [Suspect]
     Active Substance: DICLOFENAC POTASSIUM
     Indication: DYSMENORRHOEA
     Dosage: 4 DF, QMO (MONTHLY, 2 SACHETS PER DAY, THE 1ST 2 DAYS IN MENSTRUATION)
     Route: 065

REACTIONS (3)
  - Renal pain [Recovered/Resolved]
  - Nephrolithiasis [Recovered/Resolved]
  - Blood urine present [Unknown]

NARRATIVE: CASE EVENT DATE: 20151231
